FAERS Safety Report 15711165 (Version 1)
Quarter: 2018Q4

REPORT INFORMATION
  Report Type: Spontaneous
  Country: US (occurrence: US)
  Receive Date: 20181211
  Receipt Date: 20181211
  Transmission Date: 20190205
  Serious: Yes (Death, Other)
  Sender: FDA-Public Use
  Company Number: PHHY2018US146372

PATIENT
  Age: 13 Year
  Sex: Male

DRUGS (2)
  1. GRANULOCYTE COLONY STIMULATING FACTOR [Suspect]
     Active Substance: GRANULOCYTE COLONY-STIMULATING FACTOR NOS
     Indication: PNEUMONIA FUNGAL
  2. GRANULOCYTE COLONY STIMULATING FACTOR [Suspect]
     Active Substance: GRANULOCYTE COLONY-STIMULATING FACTOR NOS
     Indication: INFANTILE GENETIC AGRANULOCYTOSIS
     Dosage: 480 UG, QD
     Route: 065

REACTIONS (7)
  - Fatigue [Unknown]
  - Product use in unapproved indication [Unknown]
  - Myelodysplastic syndrome [Unknown]
  - Acute myeloid leukaemia [Fatal]
  - Neutropenia [Unknown]
  - Malignant neoplasm progression [Fatal]
  - Contusion [Unknown]
